FAERS Safety Report 8483564-0 (Version None)
Quarter: 2012Q3

REPORT INFORMATION
  Report Type: 
  Country: None (occurrence: None)
  Receive Date: 20120702
  Receipt Date: 20120625
  Transmission Date: 20120928
  Serious: Yes (Other)
  Sender: FDA-Public Use
  Company Number: JP-MERCK-1206USA02793

PATIENT
  Age: 31 Day
  Sex: Female

DRUGS (1)
  1. FAMOTIDINE [Suspect]
     Route: 065
     Dates: start: 20120601

REACTIONS (2)
  - OFF LABEL USE [None]
  - LIVER FUNCTION TEST ABNORMAL [None]
